FAERS Safety Report 20332042 (Version 1)
Quarter: 2022Q1

REPORT INFORMATION
  Report Type: Spontaneous
  Country: US (occurrence: None)
  Receive Date: 20220113
  Receipt Date: 20220113
  Transmission Date: 20220423
  Serious: Yes (Hospitalization)
  Sender: FDA-Public Use
  Company Number: None

PATIENT
  Sex: Male
  Weight: 108.5 kg

DRUGS (18)
  1. CISPLATIN [Suspect]
     Active Substance: CISPLATIN
  2. ETOPOSIDE [Concomitant]
     Active Substance: ETOPOSIDE
  3. BLEOMYCIN [Concomitant]
  4. ALTEPLASE [Concomitant]
  5. CEFTRIAXONE [Concomitant]
  6. CHOLECALCIFEROL [Concomitant]
  7. DOCUSATE [Concomitant]
  8. IOHEXOL [Concomitant]
  9. LIDOCAINE\PRILOCAINE [Concomitant]
     Active Substance: LIDOCAINE\PRILOCAINE
  10. LORATADINE [Concomitant]
     Active Substance: LORATADINE
  11. LOVENOX [Concomitant]
  12. METFORMIN [Concomitant]
  13. MORPHINE [Concomitant]
  14. ONDANSETRON [Concomitant]
     Active Substance: ONDANSETRON
  15. OXYCODONE [Concomitant]
  16. POLYETHYLENE GLYCOL [Concomitant]
     Active Substance: POLYETHYLENE GLYCOL
  17. SCOPOLAMINE [Concomitant]
     Active Substance: SCOPOLAMINE
  18. SENNOSIDES [Concomitant]
     Active Substance: SENNOSIDES

REACTIONS (4)
  - Disease progression [None]
  - Pain [None]
  - Adverse drug reaction [None]
  - Pulmonary mass [None]

NARRATIVE: CASE EVENT DATE: 20220103
